FAERS Safety Report 10425184 (Version 3)
Quarter: 2017Q1

REPORT INFORMATION
  Report Type: Report from Study
  Country: US (occurrence: US)
  Receive Date: 20140902
  Receipt Date: 20170223
  Transmission Date: 20170428
  Serious: Yes (Death, Life-Threatening, Hospitalization, Other)
  Sender: FDA-Public Use
  Company Number: US-BRISTOL-MYERS SQUIBB COMPANY-21289392

PATIENT
  Age: 53 Year
  Sex: Male
  Weight: 83.3 kg

DRUGS (4)
  1. BELATACEPT [Suspect]
     Active Substance: BELATACEPT
     Indication: RENAL TRANSPLANT
     Dosage: DOSED 27SEP2013;18FEB2014;02JUL2014
     Route: 042
     Dates: start: 20130902
  2. CELLCEPT [Suspect]
     Active Substance: MYCOPHENOLATE MOFETIL\MYCOPHENOLATE MOFETIL HYDROCHLORIDE
     Indication: RENAL TRANSPLANT
     Dosage: ST:1000MGXBID:1SEP13; DECR:250MGXBID:31DEC13; INCR:750MGXBID 02JUN2014; INCR:100MGXBID 15JUL14
     Route: 065
     Dates: start: 20130901, end: 20140724
  3. TACROLIMUS. [Suspect]
     Active Substance: TACROLIMUS
     Indication: RENAL TRANSPLANT
     Dosage: 5MG Q12H 1SEP13;4MG 27SEP13;3MG 18OCT13;5MG 22NOV13;0.5MG 16JAN14;1MGQ12H27FEB14;0.5MGQ12H 15JUL14
     Route: 048
     Dates: start: 20130901
  4. PREDNISONE. [Suspect]
     Active Substance: PREDNISONE
     Indication: RENAL TRANSPLANT
     Dosage: UNK
     Route: 065
     Dates: start: 20130927

REACTIONS (1)
  - Post transplant lymphoproliferative disorder [Fatal]

NARRATIVE: CASE EVENT DATE: 20140723
